FAERS Safety Report 24278883 (Version 1)
Quarter: 2024Q3

REPORT INFORMATION
  Report Type: Spontaneous
  Country: MX (occurrence: None)
  Receive Date: 20240830
  Receipt Date: 20240830
  Transmission Date: 20241016
  Serious: Yes (Disabling)
  Sender: Public
  Company Number: None

PATIENT
  Age: 32 Year
  Sex: Female
  Weight: 55 kg

DRUGS (1)
  1. MONTELUKAST [Suspect]
     Active Substance: MONTELUKAST SODIUM
     Indication: Rhinitis allergic
     Dates: start: 20200203, end: 20220104

REACTIONS (6)
  - Depression [None]
  - Insomnia [None]
  - Therapy cessation [None]
  - Initial insomnia [None]
  - Poor quality sleep [None]
  - Hypoaesthesia [None]

NARRATIVE: CASE EVENT DATE: 20210802
